FAERS Safety Report 5967509-0 (Version None)
Quarter: 2008Q4

REPORT INFORMATION
  Report Type: 
  Country: None (occurrence: None)
  Receive Date: 20081125
  Receipt Date: 20081117
  Transmission Date: 20090506
  Serious: Yes (Hospitalization, Other)
  Sender: FDA-Public Use
  Company Number: FR-PFIZER INC-2008092542

PATIENT
  Sex: Male
  Weight: 89 kg

DRUGS (3)
  1. SUTENT [Suspect]
     Indication: RENAL CANCER
     Route: 048
     Dates: start: 20080728, end: 20080928
  2. SUTENT [Suspect]
  3. KARDEGIC [Concomitant]
     Indication: ARTERITIS
     Route: 048

REACTIONS (3)
  - GASTROINTESTINAL TOXICITY [None]
  - MELAENA [None]
  - RECTAL HAEMORRHAGE [None]
